FAERS Safety Report 7622886-X (Version None)
Quarter: 2011Q3

REPORT INFORMATION
  Report Type: 
  Country: None (occurrence: None)
  Receive Date: 20110720
  Receipt Date: 20110708
  Transmission Date: 20111222
  Serious: Yes (Disabling, Other)
  Sender: FDA-Public Use
  Company Number: US-ELI_LILLY_AND_COMPANY-US201106002082

PATIENT
  Sex: Male

DRUGS (1)
  1. FORTEO [Suspect]
     Indication: OSTEOPOROSIS
     Dosage: 20 UG, QD
     Dates: start: 20110529, end: 20110531

REACTIONS (7)
  - HYPERSENSITIVITY [None]
  - MUSCLE SPASMS [None]
  - MALAISE [None]
  - INSOMNIA [None]
  - ABASIA [None]
  - GAIT DISTURBANCE [None]
  - PAIN IN EXTREMITY [None]
